FAERS Safety Report 13531930 (Version 2)
Quarter: 2017Q2

REPORT INFORMATION
  Report Type: Spontaneous
  Country: US (occurrence: US)
  Receive Date: 20170510
  Receipt Date: 20170518
  Transmission Date: 20170830
  Serious: No
  Sender: FDA-Public Use
  Company Number: US-HORIZON-VIM-0056-2017

PATIENT
  Sex: Female

DRUGS (1)
  1. VIMOVO [Suspect]
     Active Substance: ESOMEPRAZOLE MAGNESIUM\NAPROXEN
     Indication: PAIN IN EXTREMITY
     Dates: start: 2017

REACTIONS (2)
  - Nausea [Unknown]
  - Dizziness [Recovered/Resolved]
